FAERS Safety Report 4313431-5 (Version None)
Quarter: 2004Q1

REPORT INFORMATION
  Report Type: 
  Country: None (occurrence: None)
  Receive Date: 20040305
  Receipt Date: 20040305
  Transmission Date: 20041129
  Serious: Yes (Death, Hospitalization)
  Sender: FDA-Public Use
  Company Number: None

PATIENT
  Sex: Male

DRUGS (8)
  1. PREDNISONE TAB [Suspect]
     Indication: PLATELET COUNT INCREASED
     Dosage: 1 TABLET DAILY
     Dates: start: 20030408, end: 20030601
  2. PREVACID [Concomitant]
  3. PROCARDIA [Concomitant]
  4. LANOXIN [Concomitant]
  5. PROCRIT INJECTION [Concomitant]
  6. ALLOPURINOL TAB [Concomitant]
  7. FUROSEMIDE [Concomitant]
  8. KLOR-CON [Concomitant]

REACTIONS (6)
  - ANOREXIA [None]
  - ASTHENIA [None]
  - BLOOD GLUCOSE INCREASED [None]
  - BRONCHIAL INFECTION [None]
  - CARDIAC FAILURE CONGESTIVE [None]
  - DEHYDRATION [None]
